FAERS Safety Report 4309504-3 (Version None)
Quarter: 2004Q1

REPORT INFORMATION
  Report Type: 
  Country: None (occurrence: None)
  Receive Date: 20040301
  Receipt Date: 20040212
  Transmission Date: 20041129
  Serious: Yes (Other)
  Sender: FDA-Public Use
  Company Number: PHRM2004FR00881

PATIENT
  Age: 77 Year
  Sex: Female

DRUGS (1)
  1. VISUDYNE [Suspect]
     Dates: start: 20030923, end: 20030923

REACTIONS (1)
  - CARBOHYDRATE ANTIGEN 15-3 INCREASED [None]
